FAERS Safety Report 16264114 (Version 1)
Quarter: 2019Q2

REPORT INFORMATION
  Report Type: Spontaneous
  Country: US (occurrence: US)
  Receive Date: 20190502
  Receipt Date: 20190502
  Transmission Date: 20190711
  Serious: No
  Sender: FDA-Public Use
  Company Number: US-ASTRAZENECA-2019SE53072

PATIENT
  Sex: Female
  Weight: 56.7 kg

DRUGS (4)
  1. CARBOPLATIN. [Concomitant]
     Active Substance: CARBOPLATIN
     Dosage: UNKNOWN
     Route: 065
  2. TAGRISSO [Suspect]
     Active Substance: OSIMERTINIB
     Indication: NON-SMALL CELL LUNG CANCER
     Route: 048
     Dates: start: 20190107
  3. TAGRISSO [Suspect]
     Active Substance: OSIMERTINIB
     Indication: NON-SMALL CELL LUNG CANCER
     Route: 048
  4. PEMETREXED. [Concomitant]
     Active Substance: PEMETREXED
     Dosage: UNKNOWN
     Route: 065

REACTIONS (4)
  - Fatigue [Unknown]
  - Dizziness [Unknown]
  - Dyspepsia [Unknown]
  - Oesophagitis [Unknown]
